FAERS Safety Report 4353134-4 (Version None)
Quarter: 2004Q2

REPORT INFORMATION
  Report Type: 
  Country: None (occurrence: None)
  Receive Date: 20040429
  Receipt Date: 20040416
  Transmission Date: 20050107
  Serious: Yes (Hospitalization)
  Sender: FDA-Public Use
  Company Number: 2004GB00920

PATIENT
  Sex: 0

DRUGS (2)
  1. GEFITINIB [Suspect]
     Indication: COLORECTAL CANCER
  2. FLUOROURACIL [Suspect]
     Indication: COLORECTAL CANCER

REACTIONS (3)
  - BLOOD SODIUM DECREASED [None]
  - DECREASED APPETITE [None]
  - LETHARGY [None]
